FAERS Safety Report 18707733 (Version 2)
Quarter: 2021Q1

REPORT INFORMATION
  Report Type: Spontaneous
  Country: US (occurrence: US)
  Receive Date: 20210106
  Receipt Date: 20210119
  Transmission Date: 20210419
  Serious: Yes (Life-Threatening, Hospitalization, Other)
  Sender: FDA-Public Use
  Company Number: US-PFIZER INC-2020521247

PATIENT
  Age: 18 Year
  Sex: Female

DRUGS (1)
  1. DILTIAZEM HCL [Suspect]
     Active Substance: DILTIAZEM HYDROCHLORIDE
     Dosage: 10 OF HER MOTHER?S DILTIAZEM PILLS

REACTIONS (4)
  - Atrioventricular block complete [Recovered/Resolved]
  - Nodal rhythm [Recovered/Resolved]
  - Intentional overdose [Recovered/Resolved]
  - Atrioventricular dissociation [Recovered/Resolved]
